FAERS Safety Report 18519481 (Version 1)
Quarter: 2020Q4

REPORT INFORMATION
  Report Type: Report from Study
  Country: GB (occurrence: GB)
  Receive Date: 20201118
  Receipt Date: 20201118
  Transmission Date: 20210114
  Serious: Yes (Hospitalization)
  Sender: FDA-Public Use
  Company Number: GB-ASTRAZENECA-2020SF48383

PATIENT
  Sex: Male
  Weight: 80.8 kg

DRUGS (14)
  1. FENTANYL. [Concomitant]
     Active Substance: FENTANYL
     Indication: ANALGESIC THERAPY
  2. ONDANSETRON [Concomitant]
     Active Substance: ONDANSETRON
     Indication: NAUSEA
     Dates: start: 20200922
  3. CISPLATIN. [Suspect]
     Active Substance: CISPLATIN
     Indication: OROPHARYNGEAL CANCER
     Route: 042
     Dates: start: 20200824, end: 20200925
  4. PARACETAMOL [Concomitant]
     Active Substance: ACETAMINOPHEN
     Indication: ANALGESIC THERAPY
     Route: 048
     Dates: start: 202007
  5. CYCLIZINE [Concomitant]
     Active Substance: CYCLIZINE
     Indication: NAUSEA
     Dates: start: 20200922
  6. MORPHINE SULPHATE [Concomitant]
     Active Substance: MORPHINE SULFATE
     Indication: NAUSEA
     Dates: start: 20200922
  7. DEXAMETHASONE. [Concomitant]
     Active Substance: DEXAMETHASONE
     Indication: NAUSEA
     Dates: start: 20200922
  8. ORABASE CREAM [Concomitant]
     Indication: NAUSEA
     Dates: start: 20200922
  9. APREPITANT. [Concomitant]
     Active Substance: APREPITANT
     Indication: NAUSEA
     Dates: start: 20200922
  10. OXYCODONE [Concomitant]
     Active Substance: OXYCODONE
     Indication: NAUSEA
     Dates: start: 20200922
  11. DURVALUMAB. [Suspect]
     Active Substance: DURVALUMAB
     Indication: OROPHARYNGEAL CANCER
     Route: 042
     Dates: start: 20200813, end: 20200813
  12. RADIOTHERAPY [Suspect]
     Active Substance: RADIATION THERAPY
     Indication: OROPHARYNGEAL CANCER
     Dosage: 64 GY; 32 FRACTION
     Dates: start: 20200824
  13. ORAMORPH [Concomitant]
     Active Substance: MORPHINE SULFATE
     Indication: ANALGESIC THERAPY
     Route: 048
     Dates: start: 202007
  14. LORAZEPAM. [Concomitant]
     Active Substance: LORAZEPAM
     Indication: NAUSEA
     Dates: start: 20200922

REACTIONS (1)
  - Pain [Recovered/Resolved]

NARRATIVE: CASE EVENT DATE: 20201004
